FAERS Safety Report 9458973 (Version 3)
Quarter: 2013Q3

REPORT INFORMATION
  Report Type: Spontaneous
  Country: US (occurrence: US)
  Receive Date: 20130814
  Receipt Date: 20130830
  Transmission Date: 20140515
  Serious: Yes (Other)
  Sender: FDA-Public Use
  Company Number: CHPA2013US012730

PATIENT
  Sex: Male

DRUGS (2)
  1. VOLTAREN GEL [Suspect]
     Indication: NECK INJURY
     Dosage: UNK, UNK
     Route: 061
     Dates: start: 201210
  2. VOLTAREN GEL [Suspect]
     Dosage: 2 G, BID
     Route: 061
     Dates: start: 201307, end: 20130812

REACTIONS (5)
  - Blood urine present [Recovered/Resolved]
  - Dysuria [Recovering/Resolving]
  - Abdominal discomfort [Unknown]
  - Off label use [Unknown]
  - Drug administered at inappropriate site [Unknown]
